FAERS Safety Report 9543360 (Version 2)
Quarter: 2013Q3

REPORT INFORMATION
  Report Type: Spontaneous
  Country: US (occurrence: US)
  Receive Date: 20130923
  Receipt Date: 20130926
  Transmission Date: 20140515
  Serious: Yes (Hospitalization)
  Sender: FDA-Public Use
  Company Number: US-JNJFOC-20130910143

PATIENT
  Age: 56 Year
  Sex: Female
  Weight: 50.35 kg

DRUGS (11)
  1. NUCYNTA ER [Suspect]
     Indication: PAIN
     Dosage: TWICE DAILY
     Route: 048
     Dates: start: 201307, end: 20130826
  2. NUCYNTA ER [Suspect]
     Indication: PAIN
     Dosage: TWICE DAILY
     Route: 048
     Dates: start: 20130826, end: 20130826
  3. DILAUDID [Suspect]
     Indication: PAIN
     Dosage: EVERY 4 HOURS
     Route: 048
  4. DILAUDID [Suspect]
     Indication: PAIN
     Dosage: ONCE EVERY 6 HOURS
     Route: 048
     Dates: start: 20130820
  5. PROZAC [Concomitant]
     Indication: DEPRESSION
     Dosage: ONCE DAILY
     Route: 048
     Dates: start: 2013
  6. REMERON [Concomitant]
     Indication: SLEEP DISORDER
     Dosage: ONCE DAILY
     Route: 048
     Dates: start: 2013
  7. METOPROLOL [Concomitant]
     Indication: ARRHYTHMIA
     Dosage: ONCE DAILY
     Route: 048
     Dates: start: 201208
  8. MAXOL [Concomitant]
     Indication: MIGRAINE
     Route: 065
  9. PRAVASTATIN [Concomitant]
     Indication: BLOOD CHOLESTEROL INCREASED
     Dosage: ONCE DAILY
     Route: 048
  10. NEBULIZER ALBUTEROL [Concomitant]
     Route: 065
  11. XOPENEX [Concomitant]
     Route: 065

REACTIONS (6)
  - Renal failure [Recovering/Resolving]
  - Cardiac failure congestive [Recovering/Resolving]
  - Hepatic failure [Recovering/Resolving]
  - Pneumonia [Recovering/Resolving]
  - Drug ineffective [Unknown]
  - Weight decreased [Recovering/Resolving]
